FAERS Safety Report 8185895-0 (Version None)
Quarter: 2012Q1

REPORT INFORMATION
  Report Type: 
  Country: None (occurrence: None)
  Receive Date: 20120305
  Receipt Date: 20120224
  Transmission Date: 20120608
  Serious: Yes (Hospitalization)
  Sender: FDA-Public Use
  Company Number: US-ASTRAZENECA-2012SE13193

PATIENT
  Age: 19806 Day
  Sex: Female
  Weight: 85.9 kg

DRUGS (7)
  1. VENTOLIN [Suspect]
     Indication: CHRONIC OBSTRUCTIVE PULMONARY DISEASE
     Dosage: 180 MCG PRN
     Route: 055
     Dates: start: 20120110, end: 20120131
  2. SYMBICORT [Suspect]
     Indication: CHRONIC OBSTRUCTIVE PULMONARY DISEASE
     Dosage: 160/4.5 MCG TWICE DAILY
     Route: 055
     Dates: start: 20111011, end: 20120131
  3. SINGLE BLIND PLACEBO [Suspect]
     Indication: CHRONIC OBSTRUCTIVE PULMONARY DISEASE
     Dosage: DAILY
     Route: 048
     Dates: start: 20120118, end: 20120131
  4. IMITREX [Concomitant]
     Indication: MIGRAINE
     Route: 048
     Dates: start: 20080902
  5. NAPROXEN [Concomitant]
     Indication: OSTEOARTHRITIS
     Route: 048
     Dates: start: 20120101
  6. ESTRADIOL [Concomitant]
     Indication: HORMONE REPLACEMENT THERAPY
     Route: 048
     Dates: start: 20080101
  7. CYCLOBENZAPRINE [Concomitant]
     Indication: OSTEOARTHRITIS
     Dosage: 10 MG PRN
     Route: 048
     Dates: start: 20120101

REACTIONS (1)
  - PNEUMONIA [None]
